FAERS Safety Report 23843079 (Version 1)
Quarter: 2024Q2

REPORT INFORMATION
  Report Type: Spontaneous
  Country: JP (occurrence: JP)
  Receive Date: 20240510
  Receipt Date: 20240510
  Transmission Date: 20240716
  Serious: Yes (Other)
  Sender: FDA-Public Use
  Company Number: JP-PFIZER INC-PV202400059658

PATIENT
  Age: 77 Year
  Sex: Female

DRUGS (7)
  1. METHOTREXATE SODIUM [Suspect]
     Active Substance: METHOTREXATE SODIUM
     Dosage: 9 COURSES OF WEEKLY
     Route: 037
  2. DEXAMETHASONE [Concomitant]
     Active Substance: DEXAMETHASONE
     Dosage: TWO COURSES
  3. CYCLOPHOSPHAMIDE [Concomitant]
     Active Substance: CYCLOPHOSPHAMIDE
     Dosage: TWO COURSES
  4. VINCRISTINE [Concomitant]
     Active Substance: VINCRISTINE
     Dosage: TWO COURSES
  5. DOXORUBICIN [Concomitant]
     Active Substance: DOXORUBICIN
     Dosage: TWO COURSES
  6. METHOTREXATE SODIUM [Concomitant]
     Active Substance: METHOTREXATE SODIUM
     Dosage: TWO COURSES
  7. CYTARABINE [Concomitant]
     Active Substance: CYTARABINE
     Dosage: TWO COURSES

REACTIONS (1)
  - Myelopathy [Recovering/Resolving]
